FAERS Safety Report 20216314 (Version 3)
Quarter: 2022Q2

REPORT INFORMATION
  Report Type: Spontaneous
  Country: US (occurrence: US)
  Receive Date: 20211222
  Receipt Date: 20220519
  Transmission Date: 20220721
  Serious: No
  Sender: FDA-Public Use
  Company Number: USA--2021-US-000799

PATIENT
  Sex: Male

DRUGS (2)
  1. LATANOPROST [Suspect]
     Active Substance: LATANOPROST
     Dosage: 1 GGT PER DAY IN EACH EYE
  2. ESSENTIAL OILS [Concomitant]
     Active Substance: ESSENTIAL OILS
     Route: 061

REACTIONS (2)
  - Therapeutic response decreased [Unknown]
  - Vision blurred [Unknown]
